FAERS Safety Report 10137649 (Version 1)
Quarter: 2014Q2

REPORT INFORMATION
  Report Type: Spontaneous
  Country: GB (occurrence: None)
  Receive Date: 20140425
  Receipt Date: 20140425
  Transmission Date: 20141212
  Serious: No
  Sender: FDA-Public Use
  Company Number: GB2014K1304SPO

PATIENT
  Age: 50 Year
  Sex: Female
  Weight: 107.95 kg

DRUGS (5)
  1. LANSOPRAZOLE WORLD [Suspect]
     Indication: ABDOMINAL PAIN UPPER
     Route: 048
     Dates: start: 20140319
  2. BENDROFLUAZIDE (BENDROFLUAZIDE) [Concomitant]
  3. BISOPROLOL (BISOPROLOL) [Concomitant]
  4. PRAVASTATIN (PRAVASTATIN) [Concomitant]
  5. RAMIPRIL (RAMIPRIL) [Concomitant]

REACTIONS (5)
  - Dizziness [None]
  - Fatigue [None]
  - Feeling abnormal [None]
  - Palpitations [None]
  - Somnolence [None]
